FAERS Safety Report 7893943-8 (Version None)
Quarter: 2011Q4

REPORT INFORMATION
  Report Type: 
  Country: None (occurrence: None)
  Receive Date: 20111104
  Receipt Date: 20111028
  Transmission Date: 20120403
  Serious: Yes (Death, Other)
  Sender: FDA-Public Use
  Company Number: US-COVIDIEN/TYCO HEALTHCARE/MALLINCKRODT-T201102288

PATIENT
  Age: 20 Year
  Sex: Male

DRUGS (5)
  1. OTHER HYPNOTICS AND SEDATIVES [Suspect]
     Indication: ANXIETY
  2. FENTANYL-100 [Suspect]
     Indication: PAIN
     Dosage: UNK
     Dates: start: 20100212
  3. OXYCODONE HCL [Suspect]
     Indication: PAIN
     Dosage: UNK
  4. DILAUDID [Suspect]
     Indication: PAIN
  5. XANAX [Suspect]
     Indication: ANXIETY

REACTIONS (5)
  - WRONG TECHNIQUE IN DRUG USAGE PROCESS [None]
  - RESPIRATORY FAILURE [None]
  - SOMNOLENCE [None]
  - ACCIDENTAL OVERDOSE [None]
  - RESPIRATORY RATE DECREASED [None]
